FAERS Safety Report 5279515-2 (Version None)
Quarter: 2007Q1

REPORT INFORMATION
  Report Type: 
  Country: None (occurrence: None)
  Receive Date: 20070328
  Receipt Date: 20070320
  Transmission Date: 20070707
  Serious: Yes (Life-Threatening, Other)
  Sender: FDA-Public Use
  Company Number: US-PFIZER INC-2006153837

PATIENT
  Sex: Male
  Weight: 42.4 kg

DRUGS (2)
  1. GENOTROPIN [Suspect]
     Indication: GROWTH HORMONE DEFICIENCY
     Route: 058
     Dates: start: 20041124, end: 20061214
  2. STRATTERA [Concomitant]
     Indication: ATTENTION DEFICIT/HYPERACTIVITY DISORDER
     Dosage: DAILY DOSE:18MG-FREQ:DAILY
     Route: 048

REACTIONS (2)
  - ASTROCYTOMA [None]
  - ATTENTION DEFICIT/HYPERACTIVITY DISORDER [None]
